FAERS Safety Report 7986355-X (Version None)
Quarter: 2011Q4

REPORT INFORMATION
  Report Type: 
  Country: None (occurrence: None)
  Receive Date: 20111216
  Receipt Date: 20101112
  Transmission Date: 20120403
  Serious: No
  Sender: FDA-Public Use
  Company Number: US-GLAXOSMITHKLINE-A0892244A

PATIENT
  Age: 41 Year
  Sex: Female

DRUGS (1)
  1. COREG CR [Suspect]
     Indication: HYPERTENSION
     Dosage: 40MG PER DAY
     Route: 048
     Dates: start: 20030831

REACTIONS (2)
  - NAUSEA [None]
  - PRODUCT QUALITY ISSUE [None]
